FAERS Safety Report 10729345 (Version 1)
Quarter: 2015Q1

REPORT INFORMATION
  Report Type: Spontaneous
  Country: US (occurrence: None)
  Receive Date: 20150120
  Receipt Date: 20150120
  Transmission Date: 20150721
  Serious: No
  Sender: FDA-Public Use
  Company Number: None

PATIENT
  Age: 49 Year
  Sex: Male
  Weight: 70.31 kg

DRUGS (1)
  1. TAMIFLU [Suspect]
     Active Substance: OSELTAMIVIR PHOSPHATE
     Indication: INFLUENZA
     Dosage: 2 PER DAY 75 ML PER DOSE
     Route: 048
     Dates: start: 20150113, end: 20150114

REACTIONS (3)
  - Anxiety [None]
  - Hallucination [None]
  - Insomnia [None]

NARRATIVE: CASE EVENT DATE: 20150113
